FAERS Safety Report 4589065-4 (Version None)
Quarter: 2005Q1

REPORT INFORMATION
  Report Type: 
  Country: None (occurrence: None)
  Receive Date: 20050222
  Receipt Date: 20041202
  Transmission Date: 20050727
  Serious: Yes (Hospitalization)
  Sender: FDA-Public Use
  Company Number: DE-MERCK-0412DEU00040

PATIENT
  Age: 76 Year
  Sex: Male
  Weight: 103 kg

DRUGS (8)
  1. VIOXX [Suspect]
     Route: 048
     Dates: start: 20040101, end: 20040916
  2. VIOXX [Suspect]
     Route: 048
     Dates: start: 19990801, end: 20040229
  3. LISINOPRIL [Concomitant]
     Indication: HYPERTENSION
     Route: 065
     Dates: start: 20021209
  4. FUROSEMIDE [Concomitant]
     Indication: HYPERTENSION
     Route: 065
     Dates: start: 20021204
  5. FLUVASTATIN SODIUM [Concomitant]
     Indication: LIPID METABOLISM DISORDER
     Route: 065
     Dates: start: 20021209
  6. MOXONIDINE [Concomitant]
     Indication: HYPERTENSION
     Route: 065
     Dates: start: 20030203, end: 20041022
  7. NITRENDIPINE [Concomitant]
     Indication: HYPERTENSION
     Route: 065
     Dates: start: 19991125, end: 20040301
  8. ASPIRIN [Concomitant]
     Route: 065
     Dates: start: 19930817, end: 20040719

REACTIONS (2)
  - BLOOD PRESSURE INCREASED [None]
  - CEREBRAL INFARCTION [None]
